FAERS Safety Report 8852956 (Version 3)
Quarter: 2013Q2

REPORT INFORMATION
  Report Type: Spontaneous
  Country: US (occurrence: US)
  Receive Date: 20121022
  Receipt Date: 20130506
  Transmission Date: 20140414
  Serious: No
  Sender: FDA-Public Use
  Company Number: US-009507513-1210USA001952

PATIENT
  Age: 22 Year
  Sex: Female

DRUGS (1)
  1. IMPLANON [Suspect]
     Indication: CONTRACEPTION
     Dosage: UNK MG, UNK
     Route: 059
     Dates: start: 20120920, end: 20120926

REACTIONS (4)
  - Unintended pregnancy [Unknown]
  - Fracture [Unknown]
  - Road traffic accident [Unknown]
  - Inappropriate schedule of drug administration [Unknown]
